FAERS Safety Report 18795473 (Version 1)
Quarter: 2021Q1

REPORT INFORMATION
  Report Type: Spontaneous
  Country: US (occurrence: US)
  Receive Date: 20210127
  Receipt Date: 20210127
  Transmission Date: 20210419
  Serious: Yes (Other)
  Sender: FDA-Public Use
  Company Number: US-ALLERGAN-2104151US

PATIENT
  Sex: Female

DRUGS (4)
  1. IBGARD [Concomitant]
     Indication: DEFAECATION URGENCY
  2. IBGARD [Concomitant]
     Indication: CONSTIPATION
  3. LINZESS [Suspect]
     Active Substance: LINACLOTIDE
     Indication: CONSTIPATION
     Dosage: 290 ?G, QD
     Route: 048
  4. IBGARD [Concomitant]
     Indication: ABDOMINAL DISTENSION

REACTIONS (2)
  - Breast disorder [Unknown]
  - Therapeutic product effect incomplete [Unknown]
